FAERS Safety Report 10763349 (Version 2)
Quarter: 2015Q1

REPORT INFORMATION
  Report Type: Spontaneous
  Country: JP (occurrence: JP)
  Receive Date: 20150204
  Receipt Date: 20150209
  Transmission Date: 20150721
  Serious: Yes (Death, Other)
  Sender: FDA-Public Use
  Company Number: JP-GLAXOSMITHKLINE-JP2015JPN013282

PATIENT
  Sex: Male

DRUGS (2)
  1. ARZERRA [Suspect]
     Active Substance: OFATUMUMAB
     Dosage: UNK
     Route: 041
     Dates: start: 20150120, end: 20150120
  2. ARZERRA [Suspect]
     Active Substance: OFATUMUMAB
     Indication: CHRONIC LYMPHOCYTIC LEUKAEMIA
     Dosage: UNK
     Route: 041
     Dates: start: 20141201, end: 20141201

REACTIONS (2)
  - Disease progression [Fatal]
  - Gastrointestinal haemorrhage [Fatal]
